FAERS Safety Report 4310188-9 (Version None)
Quarter: 2004Q1

REPORT INFORMATION
  Report Type: 
  Country: None (occurrence: None)
  Receive Date: 20040302
  Receipt Date: 20040302
  Transmission Date: 20041129
  Serious: Yes (Life-Threatening, Other)
  Sender: FDA-Public Use
  Company Number: None

PATIENT
  Age: 22 Year
  Sex: Female
  Weight: 66.2252 kg

DRUGS (1)
  1. SEPTOCAINE [Suspect]

REACTIONS (13)
  - AGEUSIA [None]
  - ARTHROPATHY [None]
  - BITE [None]
  - CHEST PAIN [None]
  - DRUG TOXICITY [None]
  - FEELING ABNORMAL [None]
  - HEART RATE INCREASED [None]
  - HYPOAESTHESIA [None]
  - MAJOR DEPRESSION [None]
  - MUSCLE SPASMS [None]
  - NEURALGIA [None]
  - PAIN [None]
  - TRISMUS [None]
